FAERS Safety Report 9743807 (Version 1)
Quarter: 2013Q4

REPORT INFORMATION
  Report Type: Spontaneous
  Country: US (occurrence: US)
  Receive Date: 20131210
  Receipt Date: 20131210
  Transmission Date: 20140711
  Serious: No
  Sender: FDA-Public Use
  Company Number: US-BIOGENIDEC-2013BI096553

PATIENT
  Age: 35 Year
  Sex: Female

DRUGS (1)
  1. TECFIDERA [Suspect]
     Indication: MULTIPLE SCLEROSIS
     Route: 048
     Dates: start: 201309

REACTIONS (4)
  - Neck pain [Not Recovered/Not Resolved]
  - Odynophagia [Not Recovered/Not Resolved]
  - Neck mass [Not Recovered/Not Resolved]
  - Dysphagia [Not Recovered/Not Resolved]
